FAERS Safety Report 18163188 (Version 1)
Quarter: 2020Q3

REPORT INFORMATION
  Report Type: Spontaneous
  Country: US (occurrence: US)
  Receive Date: 20200818
  Receipt Date: 20200818
  Transmission Date: 20201103
  Serious: No
  Sender: FDA-Public Use
  Company Number: US-009507513-2008USA007570

PATIENT

DRUGS (2)
  1. FOLLISTIM AQ [Suspect]
     Active Substance: FOLLITROPIN
     Dosage: 300 INTERNATIONAL UNIT
  2. FOLLISTIM AQ [Suspect]
     Active Substance: FOLLITROPIN

REACTIONS (3)
  - Product quality issue [Unknown]
  - Poor quality device used [Unknown]
  - Incorrect dose administered [Unknown]

NARRATIVE: CASE EVENT DATE: 20200810
